FAERS Safety Report 23356777 (Version 1)
Quarter: 2024Q1

REPORT INFORMATION
  Report Type: Spontaneous
  Country: SE (occurrence: SE)
  Receive Date: 20240102
  Receipt Date: 20240102
  Transmission Date: 20240409
  Serious: Yes (Hospitalization, Other)
  Sender: FDA-Public Use
  Company Number: None

PATIENT
  Age: 32 Year
  Sex: Female
  Weight: 85 kg

DRUGS (32)
  1. OLANZAPINE [Interacting]
     Active Substance: OLANZAPINE
     Indication: Anxiety
     Dosage: BID, SUBSEQUENT GRADUAL INCREASE, DURING 25 WEEKS 5 DAYS?DAILY DOSE: 5 MILLIGRAM
  2. OLANZAPINE [Interacting]
     Active Substance: OLANZAPINE
     Indication: Anxiety
     Dosage: BID, 5 MG BID DURING THE FOLLOWING 2 WEEKS, FROM 28 WEEKS?DAILY DOSE: 10 MILLIGRAM
  3. OLANZAPINE [Interacting]
     Active Substance: OLANZAPINE
     Indication: Anxiety
     Dosage: DAILY DOSE: 7.5 MILLIGRAM
  4. OLANZAPINE [Interacting]
     Active Substance: OLANZAPINE
     Indication: Anxiety
     Dosage: AT DISCHARGE?DAILY DOSE: 10 MILLIGRAM
  5. QUETIAPINE [Suspect]
     Active Substance: QUETIAPINE
     Indication: Sleep disorder
     Dosage: AT 24 WEEK 6 DAYS?DAILY DOSE: 25 MILLIGRAM
  6. VENLAFAXINE [Interacting]
     Active Substance: VENLAFAXINE HYDROCHLORIDE
     Indication: Depression
     Dosage: AT 24 WEEK, ?DAILY DOSE: 187.5 MILLIGRAM
  7. VENLAFAXINE [Interacting]
     Active Substance: VENLAFAXINE HYDROCHLORIDE
     Indication: Depression
     Dosage: INCREASE, AT 24 WEEKS 6 DAYS?DAILY DOSE: 225 MILLIGRAM
  8. VENLAFAXINE [Interacting]
     Active Substance: VENLAFAXINE HYDROCHLORIDE
     Indication: Depression
     Dosage: AT 25 WEEKS 5 DAYS?DAILY DOSE: 225 MILLIGRAM
  9. VENLAFAXINE [Interacting]
     Active Substance: VENLAFAXINE HYDROCHLORIDE
     Indication: Depression
     Dosage: TAPERING
  10. VENLAFAXINE [Interacting]
     Active Substance: VENLAFAXINE HYDROCHLORIDE
     Indication: Depression
     Dosage: AT 28 WEEKS?DAILY DOSE: 225 MILLIGRAM
  11. VENLAFAXINE [Interacting]
     Active Substance: VENLAFAXINE HYDROCHLORIDE
     Indication: Depression
     Dosage: AT DISCHARGE ?DAILY DOSE: 225 MILLIGRAM
  12. ONDANSETRON [Suspect]
     Active Substance: ONDANSETRON
     Indication: Nausea
     Dosage: AT 24 WEKS 6DAYS, AS NEEDED
  13. ONDANSETRON [Suspect]
     Active Substance: ONDANSETRON
     Indication: Nausea
     Dosage: AT 25 WEKS 5 DAYS, AS NEEDED
  14. ONDANSETRON [Suspect]
     Active Substance: ONDANSETRON
     Indication: Nausea
     Dosage: AT 28 WEKS, AS NEEDED
  15. OXAZEPAM [Suspect]
     Active Substance: OXAZEPAM
     Indication: Anxiety
     Dosage: AT 24 WEEKS 6 DAYS, AS NEEDED
  16. OXAZEPAM [Suspect]
     Active Substance: OXAZEPAM
     Indication: Anxiety
     Dosage: AT 25 WEEKS 5 DAYS, AS NEEDED
  17. OXAZEPAM [Suspect]
     Active Substance: OXAZEPAM
     Indication: Anxiety
     Dosage: AT 28 WEEKS, AS NEEDED
  18. OXAZEPAM [Suspect]
     Active Substance: OXAZEPAM
     Indication: Anxiety
     Dosage: AT DISCHARGE, AS NEEDED
  19. PROMETHAZINE [Suspect]
     Active Substance: PROMETHAZINE HYDROCHLORIDE
     Indication: Anxiety
     Dosage: AT 24 WEEKS 6 DAYS, AS NEEDED
  20. PROMETHAZINE [Suspect]
     Active Substance: PROMETHAZINE HYDROCHLORIDE
     Indication: Anxiety
     Dosage: AT 25 WEEKS 5 DAYS, AS NEEDED
  21. PROMETHAZINE [Suspect]
     Active Substance: PROMETHAZINE HYDROCHLORIDE
     Indication: Anxiety
     Dosage: AT 28 WEEKS , AS NEEDED
  22. PROMETHAZINE [Suspect]
     Active Substance: PROMETHAZINE HYDROCHLORIDE
     Indication: Anxiety
     Dosage: AT 28 DISCHARGE , AS NEEDED
  23. ZOLPIDEM [Suspect]
     Active Substance: ZOLPIDEM TARTRATE
     Indication: Sleep disorder
     Dosage: NIGHTLY REGIMEN, AT 24 WEEKS 6 DAYS?DAILY DOSE: 10 MILLIGRAM
  24. ZOLPIDEM [Suspect]
     Active Substance: ZOLPIDEM TARTRATE
     Indication: Sleep disorder
     Dosage: NIGHTLY REGIMEN, AT 25 WEEKS 5 DAYS?DAILY DOSE: 10 MILLIGRAM
  25. ZOLPIDEM [Suspect]
     Active Substance: ZOLPIDEM TARTRATE
     Indication: Sleep disorder
     Dosage: NIGHTLY REGIMEN, AT 28 WEEKS ?DAILY DOSE: 10 MILLIGRAM
  26. ZOLPIDEM [Suspect]
     Active Substance: ZOLPIDEM TARTRATE
     Indication: Sleep disorder
     Dosage: NIGHTLY REGIMEN, AT DISCHARGE?DAILY DOSE: 10 MILLIGRAM
  27. LAMOTRIGINE [Suspect]
     Active Substance: LAMOTRIGINE
     Indication: Depression
     Dosage: 50 MG TO 150 MG PER DAY, GRADUAL INCREASE OVER 2 WEEKS, AT 24 WEEKS 6 DAYS
  28. LAMOTRIGINE [Suspect]
     Active Substance: LAMOTRIGINE
     Indication: Depression
     Dosage: AT 25 WEEKS 5 DAYS,GRADUAL INCREASE OVER 2 WEEKS?DAILY DOSE: 150 MILLIGRAM
  29. LAMOTRIGINE [Suspect]
     Active Substance: LAMOTRIGINE
     Indication: Depression
     Dosage: AT 24 WEEK?DAILY DOSE: 25 MILLIGRAM
  30. LAMOTRIGINE [Suspect]
     Active Substance: LAMOTRIGINE
     Indication: Depression
     Dosage: TAPERING
  31. LAMOTRIGINE [Suspect]
     Active Substance: LAMOTRIGINE
     Indication: Depression
     Dosage: AT 28 WEEKS ?DAILY DOSE: 150 MILLIGRAM
  32. LAMOTRIGINE [Suspect]
     Active Substance: LAMOTRIGINE
     Indication: Depression
     Dosage: AT DISCHARGE ?DAILY DOSE: 150 MILLIGRAM

REACTIONS (11)
  - Proteinuria [Recovering/Resolving]
  - N-terminal prohormone brain natriuretic peptide increased [Recovering/Resolving]
  - Hypertension [Recovering/Resolving]
  - Pre-eclampsia [Recovering/Resolving]
  - Drug interaction [Recovering/Resolving]
  - Weight increased [Recovered/Resolved]
  - Hypoalbuminaemia [Recovering/Resolving]
  - Pleural effusion [Unknown]
  - Fluid retention [Unknown]
  - Maternal exposure during pregnancy [Recovered/Resolved]
  - Off label use [Recovered/Resolved]
